FAERS Safety Report 12700920 (Version 1)
Quarter: 2016Q3

REPORT INFORMATION
  Report Type: Report from Study
  Country: US (occurrence: US)
  Receive Date: 20160830
  Receipt Date: 20160830
  Transmission Date: 20161109
  Serious: Yes (Other)
  Sender: FDA-Public Use
  Company Number: PHEH2016US021428

PATIENT
  Sex: Female

DRUGS (1)
  1. GILENYA [Suspect]
     Active Substance: FINGOLIMOD HYDROCHLORIDE
     Indication: PRODUCT USED FOR UNKNOWN INDICATION
     Dosage: UNK
     Route: 065
     Dates: start: 20160630

REACTIONS (10)
  - Dyspnoea [Unknown]
  - Abdominal distension [Unknown]
  - Retinal detachment [Unknown]
  - Abdominal discomfort [Unknown]
  - Hepatic enzyme increased [Unknown]
  - Vitreous floaters [Unknown]
  - Nausea [Unknown]
  - Chromaturia [Unknown]
  - Photopsia [Unknown]
  - Eye pain [Unknown]
